FAERS Safety Report 6708085-4 (Version None)
Quarter: 2010Q2

REPORT INFORMATION
  Report Type: 
  Country: None (occurrence: None)
  Receive Date: 20100503
  Receipt Date: 20091202
  Transmission Date: 20101027
  Serious: No
  Sender: FDA-Public Use
  Company Number: US-ASTRAZENECA-2009SE30018

PATIENT
  Age: 66 Year
  Sex: Male
  Weight: 86.2 kg

DRUGS (4)
  1. NEXIUM [Suspect]
     Indication: GASTROOESOPHAGEAL REFLUX DISEASE
     Route: 048
     Dates: end: 20091115
  2. DIOVAN [Concomitant]
  3. SOMETHING FOR CHOLESTEROL [Concomitant]
  4. SOMETHING FOR BACK [Concomitant]

REACTIONS (2)
  - CHEST DISCOMFORT [None]
  - DYSPHAGIA [None]
